FAERS Safety Report 4530423-1 (Version None)
Quarter: 2004Q4

REPORT INFORMATION
  Report Type: 
  Country: None (occurrence: None)
  Receive Date: 20041215
  Receipt Date: 20041202
  Transmission Date: 20050328
  Serious: No
  Sender: FDA-Public Use
  Company Number: 2004GB02944

PATIENT

DRUGS (1)
  1. SEROQUEL [Suspect]
     Dosage: 150 MG DAILY PO
     Route: 048

REACTIONS (1)
  - SLEEP PARALYSIS [None]
